FAERS Safety Report 4933934-X (Version None)
Quarter: 2006Q1

REPORT INFORMATION
  Report Type: 
  Country: None (occurrence: None)
  Receive Date: 20060307
  Receipt Date: 20051128
  Transmission Date: 20060701
  Serious: Yes (Hospitalization)
  Sender: FDA-Public Use
  Company Number: JP-BOEHRINGER INGELHEIM PHARMACEUTICALS, INC.-2005-BP-21156YA

PATIENT
  Age: 68 Year
  Sex: Male

DRUGS (2)
  1. HARNAL D (TAMSULOSIN HYDROCHLORIDE) [Suspect]
     Indication: DYSURIA
     Route: 048
     Dates: start: 20051112, end: 20051126
  2. BLADDERON [Concomitant]
     Indication: DYSURIA
     Route: 048
     Dates: start: 20051112, end: 20051126

REACTIONS (2)
  - HEPATIC FUNCTION ABNORMAL [None]
  - URTICARIA GENERALISED [None]
